FAERS Safety Report 9000898 (Version 1)
Quarter: 2013Q1

REPORT INFORMATION
  Report Type: Spontaneous
  Country: US (occurrence: None)
  Receive Date: 20130103
  Receipt Date: 20130103
  Transmission Date: 20140127
  Serious: Yes (Hospitalization)
  Sender: FDA-Public Use
  Company Number: None

PATIENT
  Age: 66 Year
  Sex: Male
  Weight: 83.92 kg

DRUGS (9)
  1. VENOFER [Suspect]
     Indication: IRON DEFICIENCY ANAEMIA
     Route: 041
  2. VENOFER [Suspect]
     Indication: GASTROINTESTINAL HAEMORRHAGE
     Route: 041
  3. ACETAMINOPHEN [Concomitant]
  4. ALBUTEROL INHALER [Concomitant]
  5. COLLAGENASE SANTYL [Concomitant]
  6. FUROSEMIDE [Concomitant]
  7. IPRATROPIUM BROMIDE [Concomitant]
  8. PANTOPRAZOLE [Concomitant]
  9. VANCOMYCIN [Concomitant]

REACTIONS (1)
  - Sepsis [None]
